FAERS Safety Report 26158145 (Version 1)
Quarter: 2025Q4

REPORT INFORMATION
  Report Type: Spontaneous
  Country: US (occurrence: None)
  Receive Date: 20251215
  Receipt Date: 20251215
  Transmission Date: 20260118
  Serious: Yes (Hospitalization)
  Sender: FDA-CTU
  Company Number: None

PATIENT
  Age: 64 Year
  Sex: Female

DRUGS (1)
  1. DOTAREM [Suspect]
     Active Substance: GADOTERATE MEGLUMINE
     Dosage: 1.3 ML ONE TIME INTRAVENOUS
     Route: 042

REACTIONS (3)
  - Vomiting [None]
  - Retching [None]
  - Dyspnoea [None]

NARRATIVE: CASE EVENT DATE: 20251211
